FAERS Safety Report 5127841-X (Version None)
Quarter: 2006Q4

REPORT INFORMATION
  Report Type: 
  Country: None (occurrence: None)
  Receive Date: 20061016
  Receipt Date: 20061010
  Transmission Date: 20070319
  Serious: Yes (Other)
  Sender: FDA-Public Use
  Company Number: US-JNJFOC-20061002783

PATIENT
  Sex: Female
  Weight: 90.72 kg

DRUGS (6)
  1. EXTRA STRENGTH TYLENOL [Suspect]
  2. EXTRA STRENGTH TYLENOL [Suspect]
     Indication: PAIN IN EXTREMITY
  3. AMBIEN [Concomitant]
     Indication: SLEEP DISORDER
  4. ASPIRIN [Concomitant]
  5. NEURONTIN [Concomitant]
     Indication: VERTIGO
  6. DIABETES MEDICATION [Concomitant]
     Indication: DIABETES MELLITUS

REACTIONS (1)
  - HALLUCINATION [None]
